FAERS Safety Report 24001359 (Version 2)
Quarter: 2024Q4

REPORT INFORMATION
  Report Type: Spontaneous
  Country: DE (occurrence: DE)
  Receive Date: 20240621
  Receipt Date: 20241009
  Transmission Date: 20250115
  Serious: Yes (Other)
  Sender: IPSEN
  Company Number: None

PATIENT
  Age: 68 Year
  Sex: Male
  Weight: 82 kg

DRUGS (2)
  1. DYSPORT [Suspect]
     Active Substance: ABOBOTULINUMTOXINA
     Indication: Muscle spasticity
     Dosage: 500 - 1300 U
     Route: 030
     Dates: start: 2022, end: 2022
  2. DYSPORT [Suspect]
     Active Substance: ABOBOTULINUMTOXINA
     Indication: Secondary progressive multiple sclerosis
     Dosage: 500 - 1300 U
     Route: 030
     Dates: start: 2024, end: 2024

REACTIONS (6)
  - Cardiomyopathy [Recovered/Resolved with Sequelae]
  - Myositis [Recovered/Resolved with Sequelae]
  - Muscular weakness [Recovered/Resolved with Sequelae]
  - Extraocular muscle disorder [Recovered/Resolved with Sequelae]
  - Tachycardia [Unknown]
  - Diplopia [Unknown]

NARRATIVE: CASE EVENT DATE: 20221005
